FAERS Safety Report 5601521-6 (Version None)
Quarter: 2008Q1

REPORT INFORMATION
  Report Type: 
  Country: None (occurrence: None)
  Receive Date: 20080124
  Receipt Date: 20080117
  Transmission Date: 20080703
  Serious: Yes (Death, Life-Threatening, Disabling, Other)
  Sender: FDA-Public Use
  Company Number: A0703883A

PATIENT
  Age: 68 Year
  Sex: Male

DRUGS (2)
  1. BEXXAR [Suspect]
     Indication: LYMPHOMA
     Route: 042
     Dates: start: 20070101, end: 20070101
  2. UNKNOWN [Concomitant]

REACTIONS (1)
  - MYOCARDIAL INFARCTION [None]
